FAERS Safety Report 5036239-4 (Version None)
Quarter: 2006Q2

REPORT INFORMATION
  Report Type: 
  Country: None (occurrence: None)
  Receive Date: 20060531
  Receipt Date: 20060426
  Transmission Date: 20061013
  Serious: Yes (Hospitalization)
  Sender: FDA-Public Use
  Company Number: PHEH2006US05466

PATIENT
  Sex: 0

DRUGS (1)
  1. EXJADE [Suspect]

REACTIONS (1)
  - RASH [None]
